FAERS Safety Report 7312818-6 (Version None)
Quarter: 2011Q1

REPORT INFORMATION
  Report Type: 
  Country: None (occurrence: None)
  Receive Date: 20110224
  Receipt Date: 20100415
  Transmission Date: 20110831
  Serious: No
  Sender: FDA-Public Use
  Company Number: US-MYLANLABS-2010S1004492

PATIENT
  Age: 74 Year
  Sex: Male
  Weight: 57.61 kg

DRUGS (7)
  1. PLAVIX [Concomitant]
  2. METOPROLOL TARTRATE [Suspect]
     Indication: BLOOD PRESSURE INCREASED
     Route: 048
     Dates: start: 20100215
  3. METOPROLOL TARTRATE [Suspect]
     Indication: CARDIAC DISORDER
     Route: 048
     Dates: start: 20100215
  4. METOPROLOL TARTRATE [Suspect]
     Indication: CORONARY ARTERY BYPASS
     Route: 048
     Dates: start: 20100215
  5. ASPIRIN [Concomitant]
     Indication: CARDIAC DISORDER
     Route: 048
  6. METOPROLOL TARTRATE [Suspect]
     Indication: ANGIOPLASTY
     Route: 048
     Dates: start: 20100215
  7. LIPITOR [Concomitant]
     Indication: BLOOD CHOLESTEROL INCREASED
     Route: 048

REACTIONS (3)
  - HEART RATE INCREASED [None]
  - DRUG EFFECT DECREASED [None]
  - DYSPNOEA EXERTIONAL [None]
